FAERS Safety Report 25334452 (Version 1)
Quarter: 2025Q2

REPORT INFORMATION
  Report Type: Spontaneous
  Country: US (occurrence: US)
  Receive Date: 20250520
  Receipt Date: 20250520
  Transmission Date: 20250716
  Serious: No
  Sender: AZURITY PHARMACEUTICALS
  Company Number: US-AZURITY PHARMACEUTICALS, INC.-AZR202503-000985

PATIENT
  Sex: Male
  Weight: 94.785 kg

DRUGS (3)
  1. TESTOSTERONE CYPIONATE [Suspect]
     Active Substance: TESTOSTERONE CYPIONATE
     Indication: Blood testosterone decreased
     Dosage: 0.25 MILLILITER, BIW (TWICE A WEEK)
     Route: 065
     Dates: start: 202503
  2. MAGNESIUM [Concomitant]
     Active Substance: MAGNESIUM
     Indication: Product used for unknown indication
     Route: 065
  3. HOMOCYSTEINE [Concomitant]
     Active Substance: HOMOCYSTEINE
     Indication: Product used for unknown indication
     Route: 065

REACTIONS (5)
  - Pain in extremity [Unknown]
  - Poor quality product administered [Unknown]
  - Product storage error [Unknown]
  - Liquid product physical issue [Unknown]
  - Product deposit [Unknown]

NARRATIVE: CASE EVENT DATE: 20250101
